FAERS Safety Report 18049731 (Version 2)
Quarter: 2020Q3

REPORT INFORMATION
  Report Type: Spontaneous
  Country: AU (occurrence: AU)
  Receive Date: 20200721
  Receipt Date: 20200806
  Transmission Date: 20201103
  Serious: Yes (Life-Threatening, Hospitalization)
  Sender: FDA-Public Use
  Company Number: AU-BAYER-2020-138979

PATIENT
  Age: 55 Year
  Sex: Female
  Weight: 81 kg

DRUGS (2)
  1. GADOVIST [Suspect]
     Active Substance: GADOBUTROL
     Indication: MAGNETIC RESONANCE CHOLANGIOPANCREATOGRAPHY
     Dosage: 7.5 ML
     Route: 042
  2. GADOVIST [Suspect]
     Active Substance: GADOBUTROL
     Indication: MAGNETIC RESONANCE IMAGING PANCREAS
     Dosage: 7.5 UNK
     Dates: start: 20200708

REACTIONS (9)
  - Pruritus [None]
  - Anaphylactic reaction [None]
  - Dyspnoea [None]
  - Swelling face [None]
  - Urticaria [Not Recovered/Not Resolved]
  - Flushing [Not Recovered/Not Resolved]
  - Hypotension [Not Recovered/Not Resolved]
  - Bradycardia [Not Recovered/Not Resolved]
  - Rash [None]

NARRATIVE: CASE EVENT DATE: 20200708
